FAERS Safety Report 9521167 (Version 1)
Quarter: 2013Q1

REPORT INFORMATION
  Report Type: Spontaneous
  Country: US (occurrence: None)
  Receive Date: 20130305
  Receipt Date: 20130305
  Transmission Date: 20140127
  Serious: Yes (Other)
  Sender: FDA-Public Use
  Company Number: 163-21880-12073063

PATIENT
  Age: 79 Year
  Sex: Female

DRUGS (8)
  1. REVLIMID (LENALIDOMIDE) (CAPSULES) [Suspect]
     Indication: PLASMA CELL MYELOMA
     Route: 048
     Dates: start: 201204
  2. WHOLE BLOOD [Concomitant]
  3. ACYCLOVIR (ACICLOVIR) (ACICLOVIR) [Concomitant]
  4. DEXAMETHASONE (DEXAMETHASONE) [Concomitant]
  5. IRON (IRON) [Concomitant]
  6. PANTOPRAZOLE (PANTOPRAZOLE) [Concomitant]
  7. TYLENOL (PARACETAMOL) [Concomitant]
  8. VELCADE (BORTEZOMIB) [Concomitant]

REACTIONS (2)
  - Anaemia [None]
  - Platelet count decreased [None]
